FAERS Safety Report 9399445 (Version 1)
Quarter: 2013Q3

REPORT INFORMATION
  Report Type: Spontaneous
  Country: US (occurrence: None)
  Receive Date: 20130709
  Receipt Date: 20130709
  Transmission Date: 20140515
  Serious: Yes (Hospitalization)
  Sender: FDA-Public Use
  Company Number: CABO-13002918

PATIENT
  Age: 48 Year
  Sex: Male
  Weight: 74.8 kg

DRUGS (8)
  1. COMETRIQ (CABOZANTINIB) CAPSULE [Suspect]
     Indication: MALIGNANT URINARY TRACT NEOPLASM
     Route: 048
     Dates: start: 20130619
  2. AMIODARONE (AMIODARONE) [Concomitant]
  3. CYMBALTA (DULOXETINE HYDROCHLORIDE) [Concomitant]
  4. OXYCODONE (OXYCODONE) [Concomitant]
  5. OXYCONTIN (OXYCODONE HYDROCHLORIDE) [Concomitant]
  6. PANTOPRAZOLE (PANTOPRAZOLE) [Concomitant]
  7. VITAMINS [Concomitant]
  8. SENNA (SENNA ALEXANDRIA) [Concomitant]

REACTIONS (4)
  - Post procedural complication [None]
  - Nausea [None]
  - Vomiting [None]
  - Decreased appetite [None]
